FAERS Safety Report 4683879-8 (Version None)
Quarter: 2005Q2

REPORT INFORMATION
  Report Type: 
  Country: None (occurrence: None)
  Receive Date: 20050607
  Receipt Date: 20040930
  Transmission Date: 20051028
  Serious: Yes (Hospitalization)
  Sender: FDA-Public Use
  Company Number: GB-ROCHE-381786

PATIENT
  Age: 63 Year
  Sex: Female
  Weight: 56.3 kg

DRUGS (11)
  1. CAPECITABINE [Suspect]
     Dosage: INTERMITTENT THERAPY 2 WEEKS TREATMENT FOLLOWED BY ONE WEEK REST.
     Route: 048
     Dates: start: 20040917, end: 20040920
  2. CAPECITABINE [Suspect]
     Route: 048
     Dates: start: 20040922, end: 20040922
  3. CAPECITABINE [Suspect]
     Dosage: INTERMITTENT THERAPY 2 WEEKS TREATMENT FOLLOWED BY ONE WEEK REST.
     Route: 048
     Dates: start: 20041008, end: 20041118
  4. CAPECITABINE [Suspect]
     Dosage: INTERMITTENT THERAPY 2 WEEKS TREATMENT FOLLOWED BY ONE WEEK REST.
     Route: 048
     Dates: start: 20041119, end: 20050205
  5. OXALIPLATIN [Suspect]
     Route: 042
     Dates: start: 20040917, end: 20041007
  6. OXALIPLATIN [Suspect]
     Route: 042
     Dates: start: 20041008, end: 20041008
  7. DESMOPRESSIN [Concomitant]
  8. TRAZODONE [Concomitant]
  9. MST [Concomitant]
  10. PARACETAMOL [Concomitant]
  11. GABAPENTIN [Concomitant]

REACTIONS (3)
  - FISTULA [None]
  - SMALL INTESTINAL OBSTRUCTION [None]
  - VOMITING [None]
